FAERS Safety Report 13957720 (Version 1)
Quarter: 2017Q3

REPORT INFORMATION
  Report Type: Spontaneous
  Country: US (occurrence: US)
  Receive Date: 20170912
  Receipt Date: 20170912
  Transmission Date: 20171128
  Serious: Yes (Hospitalization, Other)
  Sender: FDA-Public Use
  Company Number: US-TEVA-713170USA

PATIENT
  Age: 42 Year
  Sex: Female
  Weight: 79.45 kg

DRUGS (1)
  1. DESOGESTREL W/ETHINYLESTRADIOL [Suspect]
     Active Substance: DESOGESTREL\ETHINYL ESTRADIOL
     Indication: VAGINAL HAEMORRHAGE
     Dosage: 0.15+0.3MG 6X28
     Route: 065
     Dates: start: 20160814, end: 20160924

REACTIONS (2)
  - Pulmonary embolism [Unknown]
  - Chest pain [Unknown]

NARRATIVE: CASE EVENT DATE: 20161014
